FAERS Safety Report 17875888 (Version 1)
Quarter: 2020Q2

REPORT INFORMATION
  Report Type: Spontaneous
  Country: US (occurrence: US)
  Receive Date: 20200609
  Receipt Date: 20200609
  Transmission Date: 20200714
  Serious: Yes (Other)
  Sender: FDA-Public Use
  Company Number: None

PATIENT
  Age: 61 Year
  Sex: Male
  Weight: 85.5 kg

DRUGS (2)
  1. CLINDAMYCIN 150MG CAPSULES [Suspect]
     Active Substance: CLINDAMYCIN HYDROCHLORIDE
     Indication: DENTAL OPERATION
     Dosage: ?
     Route: 048
     Dates: start: 20200602, end: 20200605
  2. ONE A DAY MEN^S VITAMINS [Concomitant]

REACTIONS (4)
  - Vomiting [None]
  - Abdominal pain upper [None]
  - Diarrhoea [None]
  - Epigastric discomfort [None]

NARRATIVE: CASE EVENT DATE: 20200605
